FAERS Safety Report 7753697-2 (Version None)
Quarter: 2011Q3

REPORT INFORMATION
  Report Type: 
  Country: None (occurrence: None)
  Receive Date: 20110915
  Receipt Date: 20110915
  Transmission Date: 20111222
  Serious: No
  Sender: FDA-Public Use
  Company Number: None

PATIENT
  Age: 32 Year
  Sex: Female
  Weight: 68.038 kg

DRUGS (1)
  1. FLUOXETINE [Suspect]
     Indication: OBSESSIVE-COMPULSIVE DISORDER
     Dosage: 10MGS
     Route: 048

REACTIONS (4)
  - LOSS OF LIBIDO [None]
  - FEMALE ORGASMIC DISORDER [None]
  - SEXUAL DYSFUNCTION [None]
  - HYPOAESTHESIA [None]
